FAERS Safety Report 8833045 (Version 7)
Quarter: 2024Q2

REPORT INFORMATION
  Report Type: Spontaneous
  Country: US (occurrence: US)
  Receive Date: 20121010
  Receipt Date: 20240418
  Transmission Date: 20240715
  Serious: Yes (Other)
  Sender: FDA-Public Use
  Company Number: US-PFIZER INC-2012246617

PATIENT
  Age: 69 Year
  Sex: Female
  Weight: 72.6 kg

DRUGS (4)
  1. PREMARIN [Suspect]
     Active Substance: ESTROGENS, CONJUGATED
     Indication: Vulvovaginal dryness
     Dosage: ON MONDAY AND FRIDAY
     Route: 067
  2. PREMARIN [Suspect]
     Active Substance: ESTROGENS, CONJUGATED
     Dosage: 0.625 MILLIGRAMS, ONCE A DAY AT NIGHT
     Dates: start: 20150210
  3. ATENOLOL [Concomitant]
     Active Substance: ATENOLOL
     Indication: Hypertension
     Dosage: 12.5 MG, 1X/DAY
  4. ATENOLOL [Concomitant]
     Active Substance: ATENOLOL
     Dosage: 25 MG (AT NIGHT)

REACTIONS (3)
  - Cystocele [Unknown]
  - Off label use [Unknown]
  - Product prescribing error [Unknown]

NARRATIVE: CASE EVENT DATE: 20100101
